FAERS Safety Report 6216981-X (Version None)
Quarter: 2009Q2

REPORT INFORMATION
  Report Type: 
  Country: None (occurrence: None)
  Receive Date: 20090604
  Receipt Date: 20090528
  Transmission Date: 20091009
  Serious: Yes (Other)
  Sender: FDA-Public Use
  Company Number: 09GB001632

PATIENT
  Age: 38 Year
  Sex: Female

DRUGS (6)
  1. NAPROXEN SODIUM [Suspect]
     Dosage: ORAL
     Route: 048
  2. PARACETAMOL 16028/0012 500 MG (PARACETAMOL) TABLET [Suspect]
     Dosage: ORAL
     Route: 048
  3. AMITRIPTYLINE (AMITRIPTYLINE PAMOATE) [Suspect]
  4. ARAVA [Suspect]
     Indication: RHEUMATOID ARTHRITIS
     Dosage: 20 MG, QD, ORAL
     Route: 048
     Dates: start: 20040610, end: 20081215
  5. CODEINE PHOSPHATE (CODEINE PHOSPHATE HEMIHYDRATE) [Suspect]
  6. LANSOPRAZOLE [Suspect]

REACTIONS (2)
  - ABORTION SPONTANEOUS [None]
  - MATERNAL DRUGS AFFECTING FOETUS [None]
